FAERS Safety Report 4683287-X (Version None)
Quarter: 2005Q2

REPORT INFORMATION
  Report Type: 
  Country: None (occurrence: None)
  Receive Date: 20050606
  Receipt Date: 20050606
  Transmission Date: 20051028
  Serious: Yes (Hospitalization)
  Sender: FDA-Public Use
  Company Number: None

PATIENT
  Sex: Male
  Weight: 149.687 kg

DRUGS (2)
  1. ACTOS [Suspect]
     Indication: DIABETES MELLITUS
     Dosage: ONE QD ORAL
     Route: 048
     Dates: start: 20050107, end: 20050401
  2. CRESTOR [Suspect]
     Indication: HYPERLIPIDAEMIA
     Dosage: ONE QD ORAL
     Route: 048
     Dates: start: 20050204, end: 20050401

REACTIONS (6)
  - DIABETES MELLITUS INADEQUATE CONTROL [None]
  - HEPATITIS [None]
  - HYPERTENSION [None]
  - INTERMITTENT CLAUDICATION [None]
  - OBESITY [None]
  - RHABDOMYOLYSIS [None]
